FAERS Safety Report 8920379 (Version 1)
Quarter: 2012Q4

REPORT INFORMATION
  Report Type: 
  Country: CZ (occurrence: CZ)
  Receive Date: 20121122
  Receipt Date: 20121122
  Transmission Date: 20130627
  Serious: Yes (Hospitalization)
  Sender: FDA-Public Use
  Company Number: CZ-US-EMD SERONO, INC.-7177138

PATIENT
  Age: 37 Year
  Sex: Female

DRUGS (4)
  1. CHORIOGONADOTROPIN ALFA [Suspect]
     Indication: IN VITRO FERTILISATION
  2. GONAL-F [Suspect]
     Indication: IN VITRO FERTILISATION
  3. ESTROGEN [Suspect]
     Indication: IN VITRO FERTILISATION
  4. GONADOTROPIN CHORIONIC HUMAN [Suspect]
     Indication: IN VITRO FERTILISATION

REACTIONS (5)
  - Clinically isolated syndrome [Recovering/Resolving]
  - Fatigue [None]
  - Restlessness [None]
  - Cognitive disorder [None]
  - Hemiparesis [None]
